FAERS Safety Report 4437596-X (Version None)
Quarter: 2004Q3

REPORT INFORMATION
  Report Type: 
  Country: None (occurrence: None)
  Receive Date: 20040830
  Receipt Date: 20040830
  Transmission Date: 20050211
  Serious: Yes (Life-Threatening, Hospitalization)
  Sender: FDA-Public Use
  Company Number: None

PATIENT
  Sex: Female
  Weight: 104.3273 kg

DRUGS (4)
  1. MAGNEVIST [Suspect]
     Indication: DISSEMINATED INTRAVASCULAR COAGULATION
     Dosage: 15 ML X 1 IV
     Route: 042
     Dates: start: 20040827, end: 20040827
  2. MAGNEVIST [Suspect]
     Indication: MICROANGIOPATHY
     Dosage: 15 ML X 1 IV
     Route: 042
     Dates: start: 20040827, end: 20040827
  3. MAGNEVIST [Suspect]
     Indication: VISION BLURRED
     Dosage: 15 ML X 1 IV
     Route: 042
     Dates: start: 20040827, end: 20040827
  4. PREDNISONE [Concomitant]

REACTIONS (2)
  - SUPRAVENTRICULAR TACHYCARDIA [None]
  - SYNCOPE VASOVAGAL [None]
